FAERS Safety Report 14099154 (Version 2)
Quarter: 2018Q1

REPORT INFORMATION
  Report Type: Spontaneous
  Country: US (occurrence: US)
  Receive Date: 20171017
  Receipt Date: 20180119
  Transmission Date: 20180508
  Serious: Yes (Other)
  Sender: FDA-Public Use
  Company Number: US-BAYER-2017-195045

PATIENT
  Age: 35 Year
  Sex: Female
  Weight: 78.01 kg

DRUGS (2)
  1. MIRENA [Suspect]
     Active Substance: LEVONORGESTREL
     Indication: CONTRACEPTION
     Dosage: 20 MCG/24HR, CONT
     Route: 015
     Dates: start: 20171009, end: 20171009
  2. MIRENA [Suspect]
     Active Substance: LEVONORGESTREL
     Indication: CONTRACEPTION
     Dosage: UNK

REACTIONS (4)
  - Complication of device insertion [None]
  - Uterine perforation [None]
  - Device difficult to use [None]
  - Device use issue [None]

NARRATIVE: CASE EVENT DATE: 20171009
